FAERS Safety Report 9969589 (Version 2)
Quarter: 2014Q1

REPORT INFORMATION
  Report Type: Spontaneous
  Country: JP (occurrence: JP)
  Receive Date: 20140306
  Receipt Date: 20140320
  Transmission Date: 20141002
  Serious: Yes (Life-Threatening, Hospitalization)
  Sender: FDA-Public Use
  Company Number: JP-009507513-1403JPN001043

PATIENT
  Age: 28 Year
  Sex: Male

DRUGS (3)
  1. DEXAMETHASONE [Suspect]
     Indication: HISTIOCYTOSIS HAEMATOPHAGIC
     Dosage: DAILY DOSE 16.5 MG, UNK
  2. CYCLOSPORINE [Suspect]
     Indication: HISTIOCYTOSIS HAEMATOPHAGIC
     Dosage: DAILY DOSE 120 MG, UNK
     Route: 048
     Dates: end: 20120714
  3. ETOPOSIDE [Concomitant]
     Indication: HISTIOCYTOSIS HAEMATOPHAGIC
     Dosage: ONE TIME DOSE 240 MG / 2 WEEK, UNK
     Route: 065

REACTIONS (2)
  - Pseudomonas infection [Recovered/Resolved]
  - Phaehyphomycosis [Recovered/Resolved]
